FAERS Safety Report 4820849-0 (Version None)
Quarter: 2005Q4

REPORT INFORMATION
  Report Type: 
  Country: None (occurrence: None)
  Receive Date: 20051104
  Receipt Date: 20051026
  Transmission Date: 20060501
  Serious: Yes (Hospitalization, Other)
  Sender: FDA-Public Use
  Company Number: FR-ABBOTT-05P-056-0315377-00

PATIENT
  Age: 39 Year
  Sex: Female

DRUGS (2)
  1. DEPAKOTE [Suspect]
     Indication: BIPOLAR DISORDER
     Route: 048
     Dates: start: 20050501
  2. UNSPECIFIED DRUG TO REDUCE TRIGLYCERIDES [Concomitant]
     Indication: HYPERTRIGLYCERIDAEMIA

REACTIONS (4)
  - BULIMIA NERVOSA [None]
  - HYPERTRIGLYCERIDAEMIA [None]
  - PANCREATITIS [None]
  - SEPSIS [None]
